FAERS Safety Report 10622578 (Version 2)
Quarter: 2014Q4

REPORT INFORMATION
  Report Type: Spontaneous
  Country: JP (occurrence: JP)
  Receive Date: 20141203
  Receipt Date: 20141219
  Transmission Date: 20150529
  Serious: Yes (Hospitalization)
  Sender: FDA-Public Use
  Company Number: JP-PFIZER INC-2014331042

PATIENT
  Age: 66 Year
  Sex: Male

DRUGS (1)
  1. GABAPEN [Suspect]
     Active Substance: GABAPENTIN
     Dosage: 200 MG (1 TABLET), DAILY
     Route: 048

REACTIONS (1)
  - Gastric cancer [Unknown]
